FAERS Safety Report 5441435-8 (Version None)
Quarter: 2007Q3

REPORT INFORMATION
  Report Type: 
  Country: None (occurrence: None)
  Receive Date: 20070828
  Receipt Date: 20070828
  Transmission Date: 20080115
  Serious: Yes (Hospitalization)
  Sender: FDA-Public Use
  Company Number: None

PATIENT
  Age: 40 Year
  Sex: Female

DRUGS (6)
  1. IMURAN [Suspect]
     Indication: MULTIPLE SCLEROSIS
     Dosage: 50MG TID PO 3 WKS PTA
     Route: 048
  2. PREVACID [Concomitant]
  3. BACLOFEN [Concomitant]
  4. ACTONEL [Concomitant]
  5. KLONOPIN [Concomitant]
  6. COPAXONE [Concomitant]

REACTIONS (4)
  - ASTHENIA [None]
  - CONDITION AGGRAVATED [None]
  - MULTIPLE SCLEROSIS [None]
  - PYREXIA [None]
